FAERS Safety Report 9562256 (Version 1)
Quarter: 2013Q3

REPORT INFORMATION
  Report Type: Spontaneous
  Country: US (occurrence: None)
  Receive Date: 20130821
  Receipt Date: 20130821
  Transmission Date: 20140515
  Serious: No
  Sender: FDA-Public Use
  Company Number: 1000045707

PATIENT
  Age: 62 Year
  Sex: Female

DRUGS (6)
  1. TUDORZA PRESSAIR (ACLIDINIUM BROMIDE) (400 MICROGRAM, POWDER) [Suspect]
     Indication: CHRONIC OBSTRUCTIVE PULMONARY DISEASE
     Dosage: 800 MCG (400 MCG, 2 IN 1 D), ORAL
     Route: 048
     Dates: start: 20130530, end: 20130603
  2. SPIRIVA (TIOTROPIUM BROMIDE) (TIOTROPIUM BROMIDE) [Concomitant]
  3. SYMBICORT [Concomitant]
  4. VENTOLIN (ALBUTEROL) [Concomitant]
  5. PAXIL (PAROXETINE) [Concomitant]
  6. METFORMIN [Concomitant]

REACTIONS (3)
  - Swollen tongue [None]
  - Lip swelling [None]
  - Dyspnoea [None]
